FAERS Safety Report 6263432-5 (Version None)
Quarter: 2009Q3

REPORT INFORMATION
  Report Type: 
  Country: None (occurrence: None)
  Receive Date: 20090710
  Receipt Date: 20090313
  Transmission Date: 20100115
  Serious: No
  Sender: FDA-Public Use
  Company Number: A0766140A

PATIENT
  Age: 74 Year
  Sex: Male

DRUGS (20)
  1. FLOVENT [Suspect]
     Indication: CHRONIC OBSTRUCTIVE PULMONARY DISEASE
     Dosage: 2PUFF TWICE PER DAY
     Route: 055
     Dates: start: 20080401
  2. DUONEB [Concomitant]
  3. BROVANA [Concomitant]
  4. NOVOLOG [Concomitant]
  5. LANTUS [Concomitant]
  6. SIMVASTATIN [Concomitant]
  7. LISINOPRIL [Concomitant]
  8. LYRICA [Concomitant]
  9. COREG [Concomitant]
  10. COLCHICINE [Concomitant]
  11. COUMADIN [Concomitant]
  12. CYMBALTA [Concomitant]
  13. LASIX [Concomitant]
  14. METOPROLOL [Concomitant]
  15. SENIOR MULTIVITAMIN [Concomitant]
  16. VITAMIN A [Concomitant]
  17. GARLIC [Concomitant]
     Route: 048
  18. NIACIN [Concomitant]
  19. POTASSIUM CHLORIDE [Concomitant]
  20. CONTINUOUS POSITIVE AIRWAY PRESSURE [Concomitant]

REACTIONS (4)
  - DYSPNOEA [None]
  - HYPERTENSION [None]
  - OEDEMA PERIPHERAL [None]
  - PRODUCT QUALITY ISSUE [None]
